FAERS Safety Report 12657033 (Version 1)
Quarter: 2016Q3

REPORT INFORMATION
  Report Type: Spontaneous
  Country: IL (occurrence: IL)
  Receive Date: 20160816
  Receipt Date: 20160816
  Transmission Date: 20161109
  Serious: Yes (Other)
  Sender: FDA-Public Use
  Company Number: IL-SHIRE-IL201610327

PATIENT
  Age: 54 Year
  Sex: Male

DRUGS (2)
  1. VYVANSE [Suspect]
     Active Substance: LISDEXAMFETAMINE DIMESYLATE
     Indication: PRODUCT USED FOR UNKNOWN INDICATION
     Dosage: 30 MG, UNKNOWN
     Route: 048
  2. XATRAL [Concomitant]
     Active Substance: ALFUZOSIN
     Indication: NEPHROLITHIASIS
     Dosage: UNK, UNKNOWN
     Route: 065

REACTIONS (2)
  - Urinary retention [Recovering/Resolving]
  - Dysuria [Recovered/Resolved]
